FAERS Safety Report 6218606-6 (Version None)
Quarter: 2009Q2

REPORT INFORMATION
  Report Type: 
  Country: None (occurrence: None)
  Receive Date: 20090608
  Receipt Date: 20090608
  Transmission Date: 20091009
  Serious: Yes (Hospitalization, Other)
  Sender: FDA-Public Use
  Company Number: US-PFIZER INC-2009193823

PATIENT
  Sex: Male
  Weight: 58.957 kg

DRUGS (4)
  1. DILANTIN [Suspect]
     Indication: CONVULSION
     Dosage: 300 MG, 1X/DAY
     Route: 048
     Dates: start: 20081201
  2. PAXIL [Concomitant]
     Dosage: UNK
  3. ABILIFY [Concomitant]
     Dosage: UNK
  4. TRAZODONE HYDROCHLORIDE [Concomitant]
     Dosage: UNK

REACTIONS (4)
  - DEPRESSION [None]
  - DRUG LEVEL INCREASED [None]
  - MEMORY IMPAIRMENT [None]
  - MENTAL DISORDER [None]
